FAERS Safety Report 8164152-2 (Version None)
Quarter: 2012Q1

REPORT INFORMATION
  Report Type: 
  Country: None (occurrence: None)
  Receive Date: 20120221
  Receipt Date: 20120207
  Transmission Date: 20120608
  Serious: Yes (Hospitalization)
  Sender: FDA-Public Use
  Company Number: AXC-2012-000047

PATIENT
  Age: 91 Year
  Sex: Female

DRUGS (4)
  1. MAGLAX (MAGNESIUM OXIDE) [Suspect]
     Indication: CONSTIPATION
     Dosage: 990 MG, QD, ORAL
     Route: 048
     Dates: end: 20120111
  2. URSODIOL [Suspect]
     Indication: BILE DUCT STONE
     Dosage: 300 MG, QD, ORAL
     Route: 048
     Dates: end: 20120111
  3. THIATON (TIQUIZIUM BROMIDE) [Suspect]
     Indication: BILE DUCT STONE
     Dosage: 30 MG, QD, ORAL
     Route: 048
     Dates: end: 20120111
  4. DIOVAN [Suspect]
     Indication: HYPERTENSION
     Dosage: 80 MG, QD, ORAL
     Route: 048
     Dates: end: 20110111

REACTIONS (8)
  - HYPOPROTHROMBINAEMIA [None]
  - BILE DUCT STENOSIS [None]
  - LIVER DISORDER [None]
  - DEFICIENCY OF BILE SECRETION [None]
  - CHOLANGITIS SUPPURATIVE [None]
  - BILE DUCT STONE [None]
  - CONDITION AGGRAVATED [None]
  - JAUNDICE [None]
